FAERS Safety Report 8411559 (Version 2)
Quarter: 2013Q2

REPORT INFORMATION
  Report Type: Report from Study
  Country: US (occurrence: US)
  Receive Date: 20120217
  Receipt Date: 20130522
  Transmission Date: 20140414
  Serious: Yes (Other)
  Sender: FDA-Public Use
  Company Number: US-ROCHE-1030163

PATIENT
  Sex: 0

DRUGS (2)
  1. BEVACIZUMAB [Suspect]
     Indication: GLIOBLASTOMA
     Route: 065
  2. TEMOZOLOMIDE [Suspect]
     Indication: GLIOBLASTOMA
     Route: 065

REACTIONS (12)
  - Thrombocytopenia [Unknown]
  - Neutropenia [Unknown]
  - Embolism venous [Unknown]
  - Fatigue [Unknown]
  - Haemorrhage [Unknown]
  - Intestinal perforation [Unknown]
  - Impaired healing [Unknown]
  - Wound infection [Unknown]
  - Dehydration [Unknown]
  - Oesophagitis [Unknown]
  - Transaminases increased [Unknown]
  - Vomiting [Unknown]
